FAERS Safety Report 13629089 (Version 2)
Quarter: 2017Q2

REPORT INFORMATION
  Report Type: Report from Study
  Country: US (occurrence: US)
  Receive Date: 20170608
  Receipt Date: 20170621
  Transmission Date: 20170830
  Serious: No
  Sender: FDA-Public Use
  Company Number: US-CELGENEUS-USA-20170510843

PATIENT
  Age: 72 Year
  Sex: Male

DRUGS (5)
  1. ELIQUIS [Concomitant]
     Active Substance: APIXABAN
     Indication: THROMBOSIS PROPHYLAXIS
     Dosage: 5 MILLIGRAM
     Route: 048
  2. POMALYST [Suspect]
     Active Substance: POMALIDOMIDE
     Indication: CENTRAL NERVOUS SYSTEM LYMPHOMA
  3. POMALYST [Suspect]
     Active Substance: POMALIDOMIDE
     Indication: LYMPHOMA
     Dosage: 5 MILLIGRAM
     Route: 048
     Dates: start: 20170208
  4. ASACOL HD [Concomitant]
     Active Substance: MESALAMINE
     Indication: CROHN^S DISEASE
     Dosage: 800 MILLIGRAM
     Route: 065
  5. MULTIVITAMIN WITH IRON [Concomitant]
     Active Substance: IRON\VITAMINS
     Indication: SUPPLEMENTATION THERAPY
     Route: 048

REACTIONS (3)
  - Oedema peripheral [Recovering/Resolving]
  - Dry eye [Recovering/Resolving]
  - Rash erythematous [Recovered/Resolved]

NARRATIVE: CASE EVENT DATE: 201705
